FAERS Safety Report 25155256 (Version 1)
Quarter: 2025Q2

REPORT INFORMATION
  Report Type: Spontaneous
  Country: US (occurrence: None)
  Receive Date: 20250402
  Receipt Date: 20250402
  Transmission Date: 20250716
  Serious: Yes (Other)
  Sender: FDA-CTU
  Company Number: None

PATIENT
  Age: 38 Year
  Sex: Female
  Weight: 78.75 kg

DRUGS (5)
  1. CABERGOLINE [Suspect]
     Active Substance: CABERGOLINE
     Indication: Hyperprolactinaemia
     Route: 048
     Dates: start: 20250123, end: 20250127
  2. BROMOCRIPTINE [Suspect]
     Active Substance: BROMOCRIPTINE
  3. OMEPRAZOLE [Concomitant]
     Active Substance: OMEPRAZOLE
  4. MAGNESIUM [Concomitant]
     Active Substance: MAGNESIUM
  5. VITAMIN B [Concomitant]
     Active Substance: VITAMIN B

REACTIONS (7)
  - Syncope [None]
  - Chest pain [None]
  - Pain in extremity [None]
  - Peripheral coldness [None]
  - Urinary incontinence [None]
  - Loss of personal independence in daily activities [None]
  - Suspected product quality issue [None]

NARRATIVE: CASE EVENT DATE: 20250127
